FAERS Safety Report 9319274 (Version 1)
Quarter: 2013Q2

REPORT INFORMATION
  Report Type: Spontaneous
  Country: US (occurrence: None)
  Receive Date: 20130524
  Receipt Date: 20130524
  Transmission Date: 20140414
  Serious: Yes (Other)
  Sender: FDA-Public Use
  Company Number: AUR-APL-2013-04242

PATIENT
  Age: 69 Year
  Sex: Female
  Weight: 86.17 kg

DRUGS (5)
  1. SIMVASTATIN (SIMVASTATIN) [Suspect]
     Indication: PRODUCT USED FOR UNKNOWN INDICATION
  2. ATORVASTATIN CALCIUM (ATORVASTATIN CALCIUM) [Suspect]
     Indication: PRODUCT USED FOR UNKNOWN INDICATION
     Dates: start: 20130216, end: 2013
  3. LOVASTATIN [Suspect]
     Indication: PRODUCT USED FOR UNKNOWN INDICATION
  4. LISINOPRIL (LISINOPRIL) [Concomitant]
  5. AMLODIPINE BESILATE (AMLODIPINE BESILATE) [Concomitant]

REACTIONS (4)
  - Muscle spasms [None]
  - Joint swelling [None]
  - Abasia [None]
  - Drug ineffective [None]
